FAERS Safety Report 6280150-8 (Version None)
Quarter: 2009Q3

REPORT INFORMATION
  Report Type: 
  Country: None (occurrence: None)
  Receive Date: 20090723
  Receipt Date: 20090715
  Transmission Date: 20100115
  Serious: Yes (Other)
  Sender: FDA-Public Use
  Company Number: PHHY2009JP29149

PATIENT
  Age: 85 Year
  Sex: Female

DRUGS (1)
  1. NEORAL [Suspect]
     Indication: APLASTIC ANAEMIA
     Dosage: 40 MG/DAY
     Route: 048

REACTIONS (3)
  - AMNESIA [None]
  - DEMENTIA [None]
  - PARANOIA [None]
